FAERS Safety Report 5948026-0 (Version None)
Quarter: 2008Q4

REPORT INFORMATION
  Report Type: 
  Country: None (occurrence: None)
  Receive Date: 20081107
  Receipt Date: 20081027
  Transmission Date: 20090506
  Serious: Yes (Other)
  Sender: FDA-Public Use
  Company Number: PAR_02408_2008

PATIENT
  Age: 10 Year
  Sex: Female

DRUGS (4)
  1. IMIPRAMINE [Suspect]
     Indication: AGGRESSION
     Dosage: (25 MG QD)
  2. IMIPRAMINE [Suspect]
     Indication: DEPRESSED MOOD
     Dosage: (25 MG QD)
  3. VALPROIC ACID [Suspect]
     Indication: BIPOLAR DISORDER
     Dosage: (20 MG/KG QD), (10 MG/KG QD)
  4. METHYLPHENIDATE HCL [Suspect]
     Indication: ATTENTION DEFICIT/HYPERACTIVITY DISORDER
     Dosage: (10 MG TID), (5 MG TID)

REACTIONS (6)
  - AGGRESSION [None]
  - DEPRESSED MOOD [None]
  - EXTRAPYRAMIDAL DISORDER [None]
  - EYE PAIN [None]
  - GAZE PALSY [None]
  - OCULOGYRIC CRISIS [None]
